FAERS Safety Report 18374815 (Version 1)
Quarter: 2020Q4

REPORT INFORMATION
  Report Type: Report from Study
  Country: None (occurrence: US)
  Receive Date: 20201013
  Receipt Date: 20201013
  Transmission Date: 20210114
  Serious: Yes (Hospitalization)
  Sender: FDA-Public Use
  Company Number: US-ABBVIE-20K-163-3288854-00

PATIENT
  Age: 44 Year
  Sex: Male

DRUGS (1)
  1. HUMIRA [Suspect]
     Active Substance: ADALIMUMAB
     Indication: ANKYLOSING SPONDYLITIS
     Route: 058
     Dates: end: 2020

REACTIONS (7)
  - Fear of disease [Unknown]
  - Intentional product misuse [Unknown]
  - Bronchitis [Recovered/Resolved]
  - Pulmonary sarcoidosis [Not Recovered/Not Resolved]
  - Pneumonia [Recovered/Resolved]
  - Pain [Unknown]
  - Pulmonary sarcoidosis [Not Recovered/Not Resolved]

NARRATIVE: CASE EVENT DATE: 201312
